FAERS Safety Report 9674232 (Version 4)
Quarter: 2014Q3

REPORT INFORMATION
  Report Type: Spontaneous
  Country: AR (occurrence: AR)
  Receive Date: 20131107
  Receipt Date: 20140728
  Transmission Date: 20150326
  Serious: Yes (Other)
  Sender: FDA-Public Use
  Company Number: AR-AMGEN-ARGSP2013077553

PATIENT
  Age: 59 Year
  Sex: Female

DRUGS (9)
  1. ENBREL [Suspect]
     Active Substance: ETANERCEPT
     Indication: RHEUMATOID ARTHRITIS
     Dosage: 50 MG, WEEKLY
     Route: 065
     Dates: start: 20110729, end: 201310
  2. ENBREL [Suspect]
     Active Substance: ETANERCEPT
     Dosage: 50 MG, WEEKLY
     Route: 065
     Dates: start: 201401
  3. PAROXETINE [Concomitant]
     Active Substance: PAROXETINE\PAROXETINE HYDROCHLORIDE
     Dosage: 20 MG, 1X/DAY
  4. ENBREL [Suspect]
     Active Substance: ETANERCEPT
     Dosage: 50 MG, WEEKLY
     Route: 065
     Dates: start: 201310, end: 201401
  5. LEVOTHYROXINE [Concomitant]
     Active Substance: LEVOTHYROXINE
     Dosage: 74 MG, 1X/DAY
  6. ALPLAX [Concomitant]
     Dosage: 1.5 MG, 1X/DAY
  7. PROCELAC [Concomitant]
     Dosage: 10 MG, 1X/DAY
  8. DELTISONA [Concomitant]
     Dosage: 4 MG, 1X/DAY
  9. METHOTREXATE (METHOTREXATE SODIUM) [Suspect]
     Active Substance: METHOTREXATE SODIUM
     Indication: RHEUMATOID ARTHRITIS
     Dosage: 10 MG, 2X/WEEK
     Route: 065

REACTIONS (11)
  - Pain [Recovered/Resolved]
  - Nervousness [Recovered/Resolved]
  - Osteoarthritis [Recovered/Resolved]
  - Wrist fracture [Recovering/Resolving]
  - Tendon injury [Recovering/Resolving]
  - Fall [Recovering/Resolving]
  - Hepatic steatosis [Recovering/Resolving]
  - Cataract [Recovered/Resolved]
  - Visual acuity reduced [Recovering/Resolving]
  - Overweight [Recovered/Resolved]
  - Swelling [Recovered/Resolved]

NARRATIVE: CASE EVENT DATE: 2012
